FAERS Safety Report 9999087 (Version 2)
Quarter: 2014Q1

REPORT INFORMATION
  Report Type: Spontaneous
  Country: DE (occurrence: None)
  Receive Date: 20140310
  Receipt Date: 20140320
  Transmission Date: 20141002
  Serious: Yes (Hospitalization)
  Sender: FDA-Public Use
  Company Number: TTX201300115

PATIENT
  Sex: Female

DRUGS (12)
  1. MARQIBO [Suspect]
     Indication: NON-HODGKIN^S LYMPHOMA
     Dosage: 3.4 MG, Q2W, INTRAVENOUS
     Route: 042
     Dates: start: 20130709
  2. CYCLOPHOSPHAMIDE (CYCLOPHOSPHAMIDE) [Suspect]
     Indication: NON-HODGKIN^S LYMPHOMA
     Dosage: 1275 MG, Q2W, INTRAVENOUS
     Route: 042
     Dates: start: 20130709
  3. DOXORUBICIN [Suspect]
     Indication: NON-HODGKIN^S LYMPHOMA
     Dosage: 85 MG, Q2W, INTRAVENOUS
     Route: 042
     Dates: start: 20130709
  4. PREDNISONE [Suspect]
     Indication: NON-HODGKIN^S LYMPHOMA
     Dosage: 6 DAYS PER CYCLE
     Route: 048
     Dates: start: 20130708
  5. PEGFILGRASTIM (PEGFILGRASTIM) [Concomitant]
  6. RITUXIMAB (RITUXIMAB) [Concomitant]
  7. KEVATRIL (GRANISETRON HYDROCHLORIDE) [Concomitant]
  8. URALYT (ARNICA MONTANA EXTRACT, CONVALLARIA MAJALIS EXTRACT, ECHINACEA ANGUSTIFOLIA, EQUISETUM ARVENSE, MAGNESIUM PHOSPHATE, RUBIA TINCTORUM, SOLIDAGO VIRGAUREA) [Concomitant]
  9. MESNA (MESNA) [Concomitant]
  10. CLOTRIMAZOLE (CLOTRIMAZOLE) [Concomitant]
  11. ACICLOVIR (ACICLOVIR SODIUM) [Concomitant]
  12. TAVANIC (LEVOFLOXACIN) [Concomitant]

REACTIONS (2)
  - Gastritis [None]
  - Arrhythmia [None]
